FAERS Safety Report 23619186 (Version 1)
Quarter: 2024Q1

REPORT INFORMATION
  Report Type: Other
  Country: US (occurrence: None)
  Receive Date: 20240311
  Receipt Date: 20240311
  Transmission Date: 20240410
  Serious: Yes (Other)
  Sender: FDA-Public Use
  Company Number: US-ROCHE-3521049

PATIENT
  Sex: Female
  Weight: 89.36 kg

DRUGS (9)
  1. OCREVUS [Suspect]
     Active Substance: OCRELIZUMAB
     Indication: Multiple sclerosis
     Dosage: 300 MG, REPEAT 2 WEEKS LATER THEN 600 MG EVERY 6 MONTHS
     Route: 042
  2. PANTOPRAZOLE SODIUM [Concomitant]
     Active Substance: PANTOPRAZOLE SODIUM
     Route: 048
  3. FAMOTIDINE [Concomitant]
     Active Substance: FAMOTIDINE
     Route: 048
  4. GABAPENTIN [Concomitant]
     Active Substance: GABAPENTIN
     Route: 048
  5. DULOXETINE HYDROCHLORIDE [Concomitant]
     Active Substance: DULOXETINE HYDROCHLORIDE
     Route: 048
  6. PROPRANOLOL HYDROCHLORIDE [Concomitant]
     Active Substance: PROPRANOLOL HYDROCHLORIDE
     Route: 048
  7. QULIPTA [Concomitant]
     Active Substance: ATOGEPANT
     Route: 048
  8. NURTEC ODT [Concomitant]
     Active Substance: RIMEGEPANT SULFATE
     Route: 048
  9. UBRELVY [Concomitant]
     Active Substance: UBROGEPANT
     Route: 048

REACTIONS (5)
  - Cataract [Unknown]
  - Demyelination [Unknown]
  - JC polyomavirus test positive [Unknown]
  - Fall [Unknown]
  - Amnesia [Unknown]
